FAERS Safety Report 5128204-3 (Version None)
Quarter: 2006Q4

REPORT INFORMATION
  Report Type: 
  Country: None (occurrence: None)
  Receive Date: 20061011
  Receipt Date: 20060925
  Transmission Date: 20070319
  Serious: Yes (Hospitalization)
  Sender: FDA-Public Use
  Company Number: S06-ITA-04140-01

PATIENT
  Age: 52 Year
  Sex: Female

DRUGS (1)
  1. MONUROL [Suspect]
     Indication: DRUG USE FOR UNKNOWN INDICATION
     Dosage: 3 G ONCE PO
     Route: 048
     Dates: start: 20060901, end: 20060901

REACTIONS (1)
  - ANAPHYLACTIC REACTION [None]
